FAERS Safety Report 24605100 (Version 1)
Quarter: 2024Q4

REPORT INFORMATION
  Report Type: Spontaneous
  Country: US (occurrence: US)
  Receive Date: 20241111
  Receipt Date: 20241111
  Transmission Date: 20250115
  Serious: No
  Sender: PARATEK PHARMACEUTICALS
  Company Number: US-PARATEK PHARMACEUTICALS, INC.-2024PTK00684

PATIENT
  Sex: Male
  Weight: 79.2 kg

DRUGS (16)
  1. NUZYRA [Suspect]
     Active Substance: OMADACYCLINE
     Indication: Mycobacterium abscessus infection
     Dosage: 300 MG, 1X/DAY
     Route: 048
     Dates: start: 20240718
  2. NUZYRA [Suspect]
     Active Substance: OMADACYCLINE
     Indication: Abdominal wall abscess
  3. NUZYRA [Suspect]
     Active Substance: OMADACYCLINE
     Indication: Peritonitis
  4. CEFTAROLINE [Concomitant]
     Active Substance: CEFTAROLINE
  5. IMIPENEM [Concomitant]
     Active Substance: IMIPENEM
  6. LINEZOLID [Concomitant]
     Active Substance: LINEZOLID
  7. ASPIRIN [Concomitant]
     Active Substance: ASPIRIN
  8. ATORVASTATIN [Concomitant]
     Active Substance: ATORVASTATIN
  9. CLONIDINE [Concomitant]
     Active Substance: CLONIDINE
  10. HYDRALAZINE [Concomitant]
     Active Substance: HYDRALAZINE HYDROCHLORIDE
  11. LASIX [Concomitant]
     Active Substance: FUROSEMIDE
  12. LOSARTAN [Concomitant]
     Active Substance: LOSARTAN
  13. METOPROLOL [Concomitant]
     Active Substance: METOPROLOL
  14. INSULIN NOS [Concomitant]
     Active Substance: INSULIN NOS
  15. VITAMIN D NOS [Concomitant]
     Active Substance: CHOLECALCIFEROL\ERGOCALCIFEROL
  16. VITAMINS [Concomitant]
     Active Substance: VITAMINS

REACTIONS (4)
  - Abdominal distension [Recovering/Resolving]
  - Diarrhoea [Recovering/Resolving]
  - Incorrect product administration duration [Not Recovered/Not Resolved]
  - Off label use [Not Recovered/Not Resolved]

NARRATIVE: CASE EVENT DATE: 20240101
